FAERS Safety Report 10676034 (Version 8)
Quarter: 2022Q1

REPORT INFORMATION
  Report Type: Report from Study
  Country: JP (occurrence: JP)
  Receive Date: 20141225
  Receipt Date: 20220207
  Transmission Date: 20220423
  Serious: Yes (Hospitalization, Other)
  Sender: FDA-Public Use
  Company Number: PHHY2013JP092311

PATIENT
  Age: 32 Year
  Sex: Male
  Weight: 47 kg

DRUGS (27)
  1. EVEROLIMUS [Suspect]
     Active Substance: EVEROLIMUS
     Indication: Heart transplant
     Dosage: 1.5 MG, QD
     Route: 048
     Dates: start: 20061129
  2. EVEROLIMUS [Suspect]
     Active Substance: EVEROLIMUS
     Indication: Prophylaxis against transplant rejection
     Dosage: 1.5 MG, QD
     Route: 048
     Dates: start: 20081213
  3. EVEROLIMUS [Suspect]
     Active Substance: EVEROLIMUS
     Dosage: 1.5 MG, QD
     Route: 048
     Dates: start: 20091213, end: 20101129
  4. EVEROLIMUS [Suspect]
     Active Substance: EVEROLIMUS
     Dosage: 0.75 MG, QD
     Route: 048
     Dates: start: 201411
  5. SULFAMETHOXAZOLE\TRIMETHOPRIM [Concomitant]
     Active Substance: SULFAMETHOXAZOLE\TRIMETHOPRIM
     Indication: Antifungal prophylaxis
     Dosage: 1 DOSAGE FORM, QW
     Route: 048
     Dates: start: 20021103
  6. SULFAMETHOXAZOLE\TRIMETHOPRIM [Concomitant]
     Active Substance: SULFAMETHOXAZOLE\TRIMETHOPRIM
     Dosage: 4 DOSAGE FORM, QW
     Route: 048
     Dates: start: 20081213
  7. SULFAMETHOXAZOLE\TRIMETHOPRIM [Concomitant]
     Active Substance: SULFAMETHOXAZOLE\TRIMETHOPRIM
     Dosage: 1 DOSAGE FORM, QW3
     Route: 048
     Dates: start: 20091213
  8. ICOSAPENT ETHYL [Concomitant]
     Active Substance: ICOSAPENT ETHYL
     Indication: Hyperlipidaemia
     Dosage: 1200 MG, UNK
     Route: 048
     Dates: start: 20051205
  9. ICOSAPENT ETHYL [Concomitant]
     Active Substance: ICOSAPENT ETHYL
     Dosage: 600 MG, UNK
     Route: 048
     Dates: start: 20081213
  10. BEPRIDIL [Concomitant]
     Active Substance: BEPRIDIL
     Indication: Arrhythmia
     Dosage: 100 MG, UNK
     Route: 048
     Dates: start: 20070402
  11. BEPRIDIL [Concomitant]
     Active Substance: BEPRIDIL
     Dosage: 100 MG, UNK
     Route: 048
     Dates: start: 20081213
  12. NEORAL [Concomitant]
     Active Substance: CYCLOSPORINE
     Indication: Heart transplant
     Dosage: 225 MG, UNK
     Route: 048
     Dates: start: 19971028, end: 20070712
  13. NEORAL [Concomitant]
     Active Substance: CYCLOSPORINE
     Dosage: 200 MG, UNK
     Route: 048
     Dates: start: 20070713, end: 20071007
  14. NEORAL [Concomitant]
     Active Substance: CYCLOSPORINE
     Dosage: 225 MG, UNK
     Route: 048
     Dates: start: 20071008
  15. NEORAL [Concomitant]
     Active Substance: CYCLOSPORINE
     Dosage: 200 MG, UNK
     Route: 048
     Dates: start: 20081213
  16. PREDONINE [Concomitant]
     Active Substance: PREDNISOLONE
     Indication: Heart transplant
     Dosage: 5 MG, UNK
     Route: 065
     Dates: start: 20021023
  17. PREDONINE [Concomitant]
     Active Substance: PREDNISOLONE
     Dosage: 100 MG, UNK
     Route: 065
     Dates: start: 20080922, end: 20080924
  18. PREDONINE [Concomitant]
     Active Substance: PREDNISOLONE
     Dosage: 5 MG, UNK
     Route: 065
     Dates: start: 20081213
  19. CELLCEPT [Concomitant]
     Active Substance: MYCOPHENOLATE MOFETIL
     Indication: Heart transplant
     Dosage: 2500 MG, UNK
     Route: 065
     Dates: start: 20001113, end: 20070827
  20. CELLCEPT [Concomitant]
     Active Substance: MYCOPHENOLATE MOFETIL
     Dosage: 2000 MG, UNK
     Route: 065
     Dates: start: 20070828, end: 20081025
  21. CELLCEPT [Concomitant]
     Active Substance: MYCOPHENOLATE MOFETIL
     Dosage: 2500 MG, UNK
     Route: 065
     Dates: start: 20081026
  22. CELLCEPT [Concomitant]
     Active Substance: MYCOPHENOLATE MOFETIL
     Dosage: 3000 MG, UNK
     Route: 065
     Dates: start: 20081213, end: 20091128
  23. CELLCEPT [Concomitant]
     Active Substance: MYCOPHENOLATE MOFETIL
     Dosage: 2500 MG, UNK
     Route: 065
     Dates: start: 20091129, end: 20101128
  24. CELLCEPT [Concomitant]
     Active Substance: MYCOPHENOLATE MOFETIL
     Dosage: 3000 MG, UNK
     Route: 065
     Dates: start: 20101129
  25. TACROLIMUS [Concomitant]
     Active Substance: TACROLIMUS
     Indication: Product used for unknown indication
     Dosage: UNK
     Route: 065
  26. AZATHIOPRINE [Concomitant]
     Active Substance: AZATHIOPRINE
     Indication: Product used for unknown indication
     Route: 065
  27. MYCOPHENOLATE MOFETIL [Concomitant]
     Active Substance: MYCOPHENOLATE MOFETIL
     Indication: Product used for unknown indication
     Dosage: UNK
     Route: 065

REACTIONS (14)
  - Cardiac failure [Not Recovered/Not Resolved]
  - Dyspnoea [Unknown]
  - Oedema peripheral [Not Recovered/Not Resolved]
  - Chylothorax [Recovering/Resolving]
  - Pleural effusion [Not Recovered/Not Resolved]
  - Chest discomfort [Recovered/Resolved]
  - Heart transplant rejection [Recovered/Resolved]
  - Complications of transplanted heart [Unknown]
  - Mitral valve incompetence [Unknown]
  - Renal impairment [Unknown]
  - Concomitant disease aggravated [Unknown]
  - Gout [Recovering/Resolving]
  - Blood cholesterol increased [Not Recovered/Not Resolved]
  - Haemoglobin decreased [Unknown]

NARRATIVE: CASE EVENT DATE: 20070702
